FAERS Safety Report 24891401 (Version 1)
Quarter: 2025Q1

REPORT INFORMATION
  Report Type: Spontaneous
  Country: FR (occurrence: FR)
  Receive Date: 20250127
  Receipt Date: 20250127
  Transmission Date: 20250409
  Serious: Yes (Other)
  Sender: MERCK KGAA
  Company Number: FR-Merck Healthcare KGaA-2025003976

PATIENT
  Sex: Male

DRUGS (1)
  1. LEVOTHYROXINE [Suspect]
     Active Substance: LEVOTHYROXINE
     Indication: Thyroid disorder

REACTIONS (1)
  - Cerebrovascular accident [Unknown]
